FAERS Safety Report 5114630-5 (Version None)
Quarter: 2006Q3

REPORT INFORMATION
  Report Type: 
  Country: None (occurrence: None)
  Receive Date: 20060926
  Receipt Date: 20060913
  Transmission Date: 20061208
  Serious: Yes (Other)
  Sender: FDA-Public Use
  Company Number: 2006AC01719

PATIENT
  Age: 48 Year
  Sex: Female

DRUGS (6)
  1. TAMOXIFEN CITRATE [Suspect]
     Indication: BREAST CANCER
     Dosage: CONTINUED UNTIL 2 YEARS AFTER LYMPH NODE DISSECTION
     Route: 048
  2. TAMOXIFEN CITRATE [Suspect]
     Route: 048
  3. RADIOTHERAPY [Suspect]
     Indication: BREAST CANCER
     Dosage: 50 GRAYS GIVEN IN 25 FRACTIONS WITH CO RAYS
  4. RADIOTHERAPY [Suspect]
     Dosage: 50 GRAYS GIVEN IN 25 FRACTIONS WITH 6MVX RAYS
  5. FLUOROURACIL [Suspect]
     Indication: BREAST CANCER
     Dosage: CONTINUED UNTIL 2 YEARS AFTER LYMPH NODE DISSECTION
     Route: 048
  6. FLUOROURACIL [Suspect]
     Route: 048

REACTIONS (1)
  - RADIATION PNEUMONITIS [None]
